FAERS Safety Report 6521182-1 (Version None)
Quarter: 2009Q4

REPORT INFORMATION
  Report Type: 
  Country: None (occurrence: None)
  Receive Date: 20091222
  Receipt Date: 20091204
  Transmission Date: 20100525
  Serious: Yes (Other)
  Sender: FDA-Public Use
  Company Number: 2009003764

PATIENT
  Age: 55 Year
  Sex: Female

DRUGS (2)
  1. ERLOTINIB HYDROCHLORIDE [Suspect]
     Indication: NON-SMALL CELL LUNG CANCER
     Dosage: (150 MG, QD) ,ORAL; (25 MG, QD) ,ORAL; (50 MG, QD) ,ORAL
     Route: 048
     Dates: start: 20091030
  2. ERLOTINIB HYDROCHLORIDE [Suspect]
     Indication: NON-SMALL CELL LUNG CANCER
     Dosage: (150 MG, QD) ,ORAL; (25 MG, QD) ,ORAL; (50 MG, QD) ,ORAL
     Route: 048
     Dates: start: 20091120

REACTIONS (3)
  - PRURITUS [None]
  - SWELLING FACE [None]
  - URTICARIA [None]
